FAERS Safety Report 13653498 (Version 1)
Quarter: 2017Q2

REPORT INFORMATION
  Report Type: Spontaneous
  Country: US (occurrence: US)
  Receive Date: 20170614
  Receipt Date: 20170614
  Transmission Date: 20170830
  Serious: No
  Sender: FDA-Public Use
  Company Number: US-ROCHE-1536350

PATIENT
  Sex: Male

DRUGS (3)
  1. METFORMIN [Concomitant]
     Active Substance: METFORMIN HYDROCHLORIDE
     Indication: TYPE 1 DIABETES MELLITUS
     Route: 065
  2. XELODA [Suspect]
     Active Substance: CAPECITABINE
     Indication: OESOPHAGEAL CARCINOMA
     Dosage: 3 PILLS IN AM AND 3 PILLS IN PM
     Route: 048
     Dates: start: 20141117
  3. LYRICA [Concomitant]
     Active Substance: PREGABALIN
     Indication: NEUROPATHY PERIPHERAL

REACTIONS (4)
  - Pain [Unknown]
  - Flatulence [Not Recovered/Not Resolved]
  - Fatigue [Recovered/Resolved]
  - Weight decreased [Unknown]

NARRATIVE: CASE EVENT DATE: 2015
